FAERS Safety Report 18673949 (Version 1)
Quarter: 2020Q4

REPORT INFORMATION
  Report Type: Spontaneous
  Country: JP (occurrence: JP)
  Receive Date: 20201228
  Receipt Date: 20201228
  Transmission Date: 20210114
  Serious: Yes (Other)
  Sender: FDA-Public Use
  Company Number: JP-SEATTLE GENETICS-2020SGN05733

PATIENT
  Age: 8 Decade
  Sex: Male

DRUGS (1)
  1. ADCETRIS [Suspect]
     Active Substance: BRENTUXIMAB VEDOTIN
     Indication: CUTANEOUS T-CELL LYMPHOMA
     Dosage: 1.8 MILLIGRAM/KILOGRAM
     Route: 041
     Dates: start: 202011, end: 202011

REACTIONS (4)
  - Off label use [Unknown]
  - Alopecia [Recovering/Resolving]
  - Disease progression [Unknown]
  - Cutaneous T-cell lymphoma [Unknown]
